FAERS Safety Report 20484168 (Version 1)
Quarter: 2022Q1

REPORT INFORMATION
  Report Type: Other
  Country: IN (occurrence: None)
  Receive Date: 20220217
  Receipt Date: 20220217
  Transmission Date: 20220423
  Serious: Yes (Hospitalization, Other)
  Sender: FDA-Public Use
  Company Number: IN-ROCHE-2435767

PATIENT
  Age: 66 Year
  Sex: Female

DRUGS (2)
  1. TRASTUZUMAB [Suspect]
     Active Substance: TRASTUZUMAB
     Indication: Breast cancer
     Route: 042
     Dates: start: 20151019
  2. KADCYLA [Suspect]
     Active Substance: ADO-TRASTUZUMAB EMTANSINE
     Indication: Breast cancer
     Route: 042
     Dates: start: 20200328

REACTIONS (11)
  - Recurrent cancer [Unknown]
  - Drug ineffective [Unknown]
  - Nodule [Unknown]
  - Malaise [Recovered/Resolved]
  - SARS-CoV-2 test positive [Unknown]
  - Pneumonia [Unknown]
  - Coagulopathy [Unknown]
  - Platelet count decreased [Unknown]
  - Gastric infection [Unknown]
  - Joint swelling [Unknown]
  - Hepatic cirrhosis [Unknown]

NARRATIVE: CASE EVENT DATE: 20200328
